FAERS Safety Report 15962209 (Version 1)
Quarter: 2019Q1

REPORT INFORMATION
  Report Type: Spontaneous
  Country: US (occurrence: US)
  Receive Date: 20190214
  Receipt Date: 20190214
  Transmission Date: 20190417
  Serious: Yes (Hospitalization, Other)
  Sender: FDA-Public Use
  Company Number: None

PATIENT

DRUGS (1)
  1. VANCOMYCIN HYDROCHLORIDE FOR INJECTION [Suspect]
     Active Substance: VANCOMYCIN HYDROCHLORIDE
     Dates: start: 20190211, end: 20190212

REACTIONS (2)
  - Drug level fluctuating [None]
  - Product quality issue [None]

NARRATIVE: CASE EVENT DATE: 20190212
